FAERS Safety Report 7470896-8 (Version None)
Quarter: 2011Q2

REPORT INFORMATION
  Report Type: 
  Country: None (occurrence: None)
  Receive Date: 20110502
  Receipt Date: 20110419
  Transmission Date: 20111010
  Serious: No
  Sender: FDA-Public Use
  Company Number: B0715404A

PATIENT
  Age: 29 Year
  Sex: Female

DRUGS (1)
  1. NICOTINE PATCH (GENERIC) (NICOTINE) [Suspect]
     Indication: EX-TOBACCO USER
     Dosage: TRANSDERMAL
     Route: 062

REACTIONS (7)
  - DISORIENTATION [None]
  - NAUSEA [None]
  - EUPHORIC MOOD [None]
  - TACHYCARDIA [None]
  - VOMITING [None]
  - TREMOR [None]
  - URTICARIA [None]
